FAERS Safety Report 24322735 (Version 1)
Quarter: 2024Q3

REPORT INFORMATION
  Report Type: Report from Study
  Country: US (occurrence: US)
  Receive Date: 20240916
  Receipt Date: 20240916
  Transmission Date: 20241016
  Serious: Yes (Disabling, Other)
  Sender: NOVARTIS
  Company Number: US-002147023-NVSC2024US133876

PATIENT
  Sex: Female

DRUGS (1)
  1. KESIMPTA [Suspect]
     Active Substance: OFATUMUMAB
     Indication: Product used for unknown indication
     Dosage: UNK
     Route: 065
     Dates: start: 20240518

REACTIONS (8)
  - Multiple sclerosis relapse [Unknown]
  - Vision blurred [Unknown]
  - Temperature intolerance [Unknown]
  - Incontinence [Unknown]
  - Peripheral swelling [Unknown]
  - Disturbance in attention [Unknown]
  - Speech disorder [Unknown]
  - Stress [Unknown]
